FAERS Safety Report 17032661 (Version 16)
Quarter: 2025Q3

REPORT INFORMATION
  Report Type: Spontaneous
  Country: CA (occurrence: CA)
  Receive Date: 20191114
  Receipt Date: 20250808
  Transmission Date: 20251020
  Serious: Yes (Hospitalization, Other)
  Sender: ALEXION PHARMACEUTICALS
  Company Number: 2019SF62241

PATIENT
  Age: 38 Year
  Sex: Male

DRUGS (252)
  1. BUDESONIDE\FORMOTEROL [Suspect]
     Active Substance: BUDESONIDE\FORMOTEROL
     Indication: Product used for unknown indication
     Route: 065
  2. BUDESONIDE\FORMOTEROL [Suspect]
     Active Substance: BUDESONIDE\FORMOTEROL
  3. BUDESONIDE\FORMOTEROL [Suspect]
     Active Substance: BUDESONIDE\FORMOTEROL
  4. CICLESONIDE [Suspect]
     Active Substance: CICLESONIDE
  5. CICLESONIDE [Suspect]
     Active Substance: CICLESONIDE
  6. CICLESONIDE [Suspect]
     Active Substance: CICLESONIDE
  7. CICLESONIDE [Suspect]
     Active Substance: CICLESONIDE
  8. CICLESONIDE [Suspect]
     Active Substance: CICLESONIDE
  9. CICLESONIDE [Suspect]
     Active Substance: CICLESONIDE
  10. CICLESONIDE [Suspect]
     Active Substance: CICLESONIDE
  11. CICLESONIDE [Suspect]
     Active Substance: CICLESONIDE
  12. CICLESONIDE [Suspect]
     Active Substance: CICLESONIDE
  13. CICLESONIDE [Suspect]
     Active Substance: CICLESONIDE
  14. CICLESONIDE [Suspect]
     Active Substance: CICLESONIDE
  15. ENTYVIO [Suspect]
     Active Substance: VEDOLIZUMAB
     Indication: Colitis ulcerative
  16. ENTYVIO [Suspect]
     Active Substance: VEDOLIZUMAB
     Indication: Colitis ulcerative
  17. ENTYVIO [Suspect]
     Active Substance: VEDOLIZUMAB
  18. ENTYVIO [Suspect]
     Active Substance: VEDOLIZUMAB
  19. ENTYVIO [Suspect]
     Active Substance: VEDOLIZUMAB
  20. ENTYVIO [Suspect]
     Active Substance: VEDOLIZUMAB
  21. ENTYVIO [Suspect]
     Active Substance: VEDOLIZUMAB
  22. ENTYVIO [Suspect]
     Active Substance: VEDOLIZUMAB
  23. ENTYVIO [Suspect]
     Active Substance: VEDOLIZUMAB
  24. ENTYVIO [Suspect]
     Active Substance: VEDOLIZUMAB
  25. ENTYVIO [Suspect]
     Active Substance: VEDOLIZUMAB
  26. ENTYVIO [Suspect]
     Active Substance: VEDOLIZUMAB
  27. ENTYVIO [Suspect]
     Active Substance: VEDOLIZUMAB
  28. ENTYVIO [Suspect]
     Active Substance: VEDOLIZUMAB
  29. ENTYVIO [Suspect]
     Active Substance: VEDOLIZUMAB
  30. ENTYVIO [Suspect]
     Active Substance: VEDOLIZUMAB
  31. ENTYVIO [Suspect]
     Active Substance: VEDOLIZUMAB
  32. ENTYVIO [Suspect]
     Active Substance: VEDOLIZUMAB
  33. ENTYVIO [Suspect]
     Active Substance: VEDOLIZUMAB
  34. ENTYVIO [Suspect]
     Active Substance: VEDOLIZUMAB
  35. ENTYVIO [Suspect]
     Active Substance: VEDOLIZUMAB
  36. ENTYVIO [Suspect]
     Active Substance: VEDOLIZUMAB
  37. ENTYVIO [Suspect]
     Active Substance: VEDOLIZUMAB
  38. ENTYVIO [Suspect]
     Active Substance: VEDOLIZUMAB
  39. SINGULAIR [Suspect]
     Active Substance: MONTELUKAST SODIUM
     Indication: Asthma
     Dosage: 10 MILLIGRAM, QD
     Dates: start: 2018
  40. SINGULAIR [Suspect]
     Active Substance: MONTELUKAST SODIUM
     Dosage: 20 MILLIGRAM, QD
  41. SINGULAIR [Suspect]
     Active Substance: MONTELUKAST SODIUM
     Dosage: 20 MILLIGRAM, QD
  42. SINGULAIR [Suspect]
     Active Substance: MONTELUKAST SODIUM
     Dosage: 10 MILLIGRAM, QD
  43. SINGULAIR [Suspect]
     Active Substance: MONTELUKAST SODIUM
     Dosage: 10 MILLIGRAM, QD
  44. SINGULAIR [Suspect]
     Active Substance: MONTELUKAST SODIUM
     Dosage: 10 MILLIGRAM, QD
  45. SINGULAIR [Suspect]
     Active Substance: MONTELUKAST SODIUM
     Dosage: 10 MILLIGRAM, QD
  46. SINGULAIR [Suspect]
     Active Substance: MONTELUKAST SODIUM
     Dosage: 10 MILLIGRAM, QD
  47. SINGULAIR [Suspect]
     Active Substance: MONTELUKAST SODIUM
     Dosage: 10 MILLIGRAM, QD
  48. SINGULAIR [Suspect]
     Active Substance: MONTELUKAST SODIUM
     Dosage: 10 MILLIGRAM, QD
  49. SINGULAIR [Suspect]
     Active Substance: MONTELUKAST SODIUM
     Dosage: 10 MILLIGRAM, QD
  50. SINGULAIR [Suspect]
     Active Substance: MONTELUKAST SODIUM
     Dosage: 10 MILLIGRAM, QD
  51. SINGULAIR [Suspect]
     Active Substance: MONTELUKAST SODIUM
     Dosage: 10 MILLIGRAM, QD
  52. FOLIC ACID [Suspect]
     Active Substance: FOLIC ACID
     Indication: Product used for unknown indication
     Dosage: 5 MILLIGRAM, QD
  53. FOLIC ACID [Suspect]
     Active Substance: FOLIC ACID
     Dosage: 5 MILLIGRAM, QD
  54. FOLIC ACID [Suspect]
     Active Substance: FOLIC ACID
     Dosage: 5 MILLIGRAM, QD
  55. FOLIC ACID [Suspect]
     Active Substance: FOLIC ACID
     Dosage: 5 MILLIGRAM, QD
  56. FOLIC ACID [Suspect]
     Active Substance: FOLIC ACID
     Dosage: 5 MILLIGRAM, QD
  57. FOLIC ACID [Suspect]
     Active Substance: FOLIC ACID
     Dosage: 5 MILLIGRAM, QD
  58. FOLIC ACID [Suspect]
     Active Substance: FOLIC ACID
     Dosage: 5 MILLIGRAM, QD
  59. FOLIC ACID [Suspect]
     Active Substance: FOLIC ACID
     Dosage: 5 MILLIGRAM, QD
  60. FOLIC ACID [Suspect]
     Active Substance: FOLIC ACID
     Dosage: 5 MILLIGRAM, QD
  61. FOLIC ACID [Suspect]
     Active Substance: FOLIC ACID
     Dosage: 5 MILLIGRAM, QD
  62. FOLIC ACID [Suspect]
     Active Substance: FOLIC ACID
     Dosage: 5 MILLIGRAM, QD
  63. FOLIC ACID [Suspect]
     Active Substance: FOLIC ACID
     Dosage: 5 MILLIGRAM, QD
  64. METHOTREXATE [Suspect]
     Active Substance: METHOTREXATE
     Indication: Vasculitis
     Dosage: 15 MILLIGRAM, QW
  65. METHOTREXATE [Suspect]
     Active Substance: METHOTREXATE
     Dosage: 25 MILLIGRAM, QW
     Dates: start: 2018
  66. METHOTREXATE [Suspect]
     Active Substance: METHOTREXATE
  67. METHOTREXATE [Suspect]
     Active Substance: METHOTREXATE
     Dosage: 15 MILLIGRAM, QW
  68. METHOTREXATE [Suspect]
     Active Substance: METHOTREXATE
     Dosage: 25 MILLIGRAM, QW
  69. METHOTREXATE [Suspect]
     Active Substance: METHOTREXATE
     Dosage: 15 MILLIGRAM, QW
  70. METHOTREXATE [Suspect]
     Active Substance: METHOTREXATE
     Dosage: 25 MILLIGRAM, QW
  71. METHOTREXATE [Suspect]
     Active Substance: METHOTREXATE
     Dosage: 15 MILLIGRAM, QW
  72. METHOTREXATE [Suspect]
     Active Substance: METHOTREXATE
     Dosage: 25 MILLIGRAM, QW
  73. METHOTREXATE [Suspect]
     Active Substance: METHOTREXATE
     Dosage: 15 MILLIGRAM, QW
  74. METHOTREXATE [Suspect]
     Active Substance: METHOTREXATE
     Dosage: 25 MILLIGRAM, QW
  75. METHOTREXATE [Suspect]
     Active Substance: METHOTREXATE
     Dosage: 25 MILLIGRAM, QW
  76. METHOTREXATE [Suspect]
     Active Substance: METHOTREXATE
     Dosage: 25 MILLIGRAM, QW
  77. METHOTREXATE [Suspect]
     Active Substance: METHOTREXATE
     Dosage: 15 MILLIGRAM, QW
  78. METHOTREXATE [Suspect]
     Active Substance: METHOTREXATE
     Dosage: 25 MILLIGRAM, QW
  79. METHOTREXATE [Suspect]
     Active Substance: METHOTREXATE
     Dosage: 15 MILLIGRAM, QW
  80. METHOTREXATE [Suspect]
     Active Substance: METHOTREXATE
     Dosage: 25 MILLIGRAM, QW
  81. METHOTREXATE [Suspect]
     Active Substance: METHOTREXATE
     Dosage: 15 MILLIGRAM, QW
  82. METHOTREXATE [Suspect]
     Active Substance: METHOTREXATE
     Dosage: 15 MILLIGRAM, QW
  83. METHOTREXATE [Suspect]
     Active Substance: METHOTREXATE
     Dosage: 15 MILLIGRAM, QW
  84. PREDNISONE [Suspect]
     Active Substance: PREDNISONE
     Indication: Product used for unknown indication
  85. PREDNISONE [Suspect]
     Active Substance: PREDNISONE
     Dosage: 10 MILLIGRAM, QD
  86. PREDNISONE [Suspect]
     Active Substance: PREDNISONE
  87. PREDNISONE [Suspect]
     Active Substance: PREDNISONE
  88. PREDNISONE [Suspect]
     Active Substance: PREDNISONE
  89. PREDNISONE [Suspect]
     Active Substance: PREDNISONE
  90. PREDNISONE [Suspect]
     Active Substance: PREDNISONE
  91. PREDNISONE [Suspect]
     Active Substance: PREDNISONE
  92. PREDNISONE [Suspect]
     Active Substance: PREDNISONE
  93. PREDNISONE [Suspect]
     Active Substance: PREDNISONE
  94. PREDNISONE [Suspect]
     Active Substance: PREDNISONE
  95. PREDNISONE [Suspect]
     Active Substance: PREDNISONE
  96. PREDNISONE [Suspect]
     Active Substance: PREDNISONE
  97. PREDNISONE [Suspect]
     Active Substance: PREDNISONE
  98. PREDNISONE [Suspect]
     Active Substance: PREDNISONE
  99. PREDNISONE [Suspect]
     Active Substance: PREDNISONE
  100. PREDNISONE [Suspect]
     Active Substance: PREDNISONE
  101. PREDNISONE [Suspect]
     Active Substance: PREDNISONE
  102. PREDNISONE [Suspect]
     Active Substance: PREDNISONE
  103. PREDNISONE [Suspect]
     Active Substance: PREDNISONE
  104. PREDNISONE [Suspect]
     Active Substance: PREDNISONE
  105. PREDNISONE [Suspect]
     Active Substance: PREDNISONE
  106. PREDNISONE [Suspect]
     Active Substance: PREDNISONE
  107. PREDNISONE [Suspect]
     Active Substance: PREDNISONE
  108. PREDNISONE [Suspect]
     Active Substance: PREDNISONE
  109. PREDNISONE [Suspect]
     Active Substance: PREDNISONE
  110. PREDNISONE [Suspect]
     Active Substance: PREDNISONE
  111. PREDNISONE [Suspect]
     Active Substance: PREDNISONE
  112. PREDNISONE [Suspect]
     Active Substance: PREDNISONE
  113. PREDNISONE [Suspect]
     Active Substance: PREDNISONE
  114. PREDNISONE [Suspect]
     Active Substance: PREDNISONE
  115. PREDNISONE [Suspect]
     Active Substance: PREDNISONE
  116. PREDNISONE [Suspect]
     Active Substance: PREDNISONE
  117. PREDNISONE [Suspect]
     Active Substance: PREDNISONE
  118. PREDNISONE [Suspect]
     Active Substance: PREDNISONE
  119. PREDNISONE [Suspect]
     Active Substance: PREDNISONE
  120. PREDNISONE [Suspect]
     Active Substance: PREDNISONE
  121. PREDNISONE [Suspect]
     Active Substance: PREDNISONE
  122. PREDNISONE [Suspect]
     Active Substance: PREDNISONE
  123. PREDNISONE [Suspect]
     Active Substance: PREDNISONE
  124. PREDNISONE [Suspect]
     Active Substance: PREDNISONE
  125. PREDNISONE [Suspect]
     Active Substance: PREDNISONE
  126. PREDNISONE [Suspect]
     Active Substance: PREDNISONE
  127. PREDNISONE [Suspect]
     Active Substance: PREDNISONE
  128. PREDNISONE [Suspect]
     Active Substance: PREDNISONE
  129. PREDNISONE [Suspect]
     Active Substance: PREDNISONE
  130. PREDNISONE [Suspect]
     Active Substance: PREDNISONE
  131. PREDNISONE [Suspect]
     Active Substance: PREDNISONE
  132. PREDNISONE [Suspect]
     Active Substance: PREDNISONE
  133. PREDNISONE [Suspect]
     Active Substance: PREDNISONE
  134. PREDNISONE [Suspect]
     Active Substance: PREDNISONE
  135. PREDNISONE [Suspect]
     Active Substance: PREDNISONE
  136. PREDNISONE [Suspect]
     Active Substance: PREDNISONE
  137. PREDNISONE [Suspect]
     Active Substance: PREDNISONE
  138. PREDNISONE [Suspect]
     Active Substance: PREDNISONE
  139. PREDNISONE [Suspect]
     Active Substance: PREDNISONE
  140. PREDNISONE [Suspect]
     Active Substance: PREDNISONE
  141. PREDNISONE [Suspect]
     Active Substance: PREDNISONE
  142. PREDNISONE [Suspect]
     Active Substance: PREDNISONE
  143. PREDNISONE [Suspect]
     Active Substance: PREDNISONE
  144. PREDNISONE [Suspect]
     Active Substance: PREDNISONE
  145. PREDNISONE [Suspect]
     Active Substance: PREDNISONE
  146. PREDNISONE [Suspect]
     Active Substance: PREDNISONE
  147. PREDNISONE [Suspect]
     Active Substance: PREDNISONE
  148. PREDNISONE [Suspect]
     Active Substance: PREDNISONE
  149. ALBUTEROL SULFATE [Suspect]
     Active Substance: ALBUTEROL SULFATE
     Indication: Product used for unknown indication
  150. ALBUTEROL SULFATE [Suspect]
     Active Substance: ALBUTEROL SULFATE
     Dosage: 10 MILLIGRAM, BID
  151. ALBUTEROL SULFATE [Suspect]
     Active Substance: ALBUTEROL SULFATE
     Dosage: 10 MILLIGRAM, BID
  152. ALBUTEROL SULFATE [Suspect]
     Active Substance: ALBUTEROL SULFATE
  153. ALBUTEROL SULFATE [Suspect]
     Active Substance: ALBUTEROL SULFATE
  154. ALBUTEROL SULFATE [Suspect]
     Active Substance: ALBUTEROL SULFATE
  155. ALBUTEROL SULFATE [Suspect]
     Active Substance: ALBUTEROL SULFATE
  156. ALBUTEROL SULFATE [Suspect]
     Active Substance: ALBUTEROL SULFATE
  157. ALBUTEROL SULFATE [Suspect]
     Active Substance: ALBUTEROL SULFATE
  158. ALBUTEROL SULFATE [Suspect]
     Active Substance: ALBUTEROL SULFATE
  159. ALBUTEROL SULFATE [Suspect]
     Active Substance: ALBUTEROL SULFATE
  160. ALBUTEROL SULFATE [Suspect]
     Active Substance: ALBUTEROL SULFATE
  161. ALBUTEROL SULFATE [Suspect]
     Active Substance: ALBUTEROL SULFATE
  162. SPIRIVA [Suspect]
     Active Substance: TIOTROPIUM BROMIDE MONOHYDRATE
     Indication: Asthma
  163. SPIRIVA [Suspect]
     Active Substance: TIOTROPIUM BROMIDE MONOHYDRATE
  164. SPIRIVA [Suspect]
     Active Substance: TIOTROPIUM BROMIDE MONOHYDRATE
  165. SPIRIVA [Suspect]
     Active Substance: TIOTROPIUM BROMIDE MONOHYDRATE
  166. SPIRIVA [Suspect]
     Active Substance: TIOTROPIUM BROMIDE MONOHYDRATE
  167. SPIRIVA [Suspect]
     Active Substance: TIOTROPIUM BROMIDE MONOHYDRATE
  168. SPIRIVA [Suspect]
     Active Substance: TIOTROPIUM BROMIDE MONOHYDRATE
  169. SPIRIVA [Suspect]
     Active Substance: TIOTROPIUM BROMIDE MONOHYDRATE
  170. SPIRIVA [Suspect]
     Active Substance: TIOTROPIUM BROMIDE MONOHYDRATE
  171. SPIRIVA [Suspect]
     Active Substance: TIOTROPIUM BROMIDE MONOHYDRATE
  172. SPIRIVA [Suspect]
     Active Substance: TIOTROPIUM BROMIDE MONOHYDRATE
  173. SPIRIVA [Suspect]
     Active Substance: TIOTROPIUM BROMIDE MONOHYDRATE
  174. SPIRIVA [Suspect]
     Active Substance: TIOTROPIUM BROMIDE MONOHYDRATE
  175. TYLENOL [Suspect]
     Active Substance: ACETAMINOPHEN
     Indication: Product used for unknown indication
  176. TYLENOL [Suspect]
     Active Substance: ACETAMINOPHEN
  177. TYLENOL [Suspect]
     Active Substance: ACETAMINOPHEN
  178. TYLENOL [Suspect]
     Active Substance: ACETAMINOPHEN
  179. TYLENOL [Suspect]
     Active Substance: ACETAMINOPHEN
  180. TYLENOL [Suspect]
     Active Substance: ACETAMINOPHEN
  181. TYLENOL [Suspect]
     Active Substance: ACETAMINOPHEN
  182. TYLENOL [Suspect]
     Active Substance: ACETAMINOPHEN
  183. TYLENOL [Suspect]
     Active Substance: ACETAMINOPHEN
  184. TYLENOL [Suspect]
     Active Substance: ACETAMINOPHEN
  185. TYLENOL [Suspect]
     Active Substance: ACETAMINOPHEN
  186. TYLENOL [Suspect]
     Active Substance: ACETAMINOPHEN
  187. UMECLIDINIUM BROMIDE [Suspect]
     Active Substance: UMECLIDINIUM BROMIDE
     Indication: Asthma
     Dosage: 62.5 MICROGRAM, QD
  188. UMECLIDINIUM BROMIDE [Suspect]
     Active Substance: UMECLIDINIUM BROMIDE
  189. UMECLIDINIUM BROMIDE [Suspect]
     Active Substance: UMECLIDINIUM BROMIDE
  190. UMECLIDINIUM BROMIDE [Suspect]
     Active Substance: UMECLIDINIUM BROMIDE
  191. UMECLIDINIUM BROMIDE [Suspect]
     Active Substance: UMECLIDINIUM BROMIDE
  192. UMECLIDINIUM BROMIDE [Suspect]
     Active Substance: UMECLIDINIUM BROMIDE
  193. UMECLIDINIUM BROMIDE [Suspect]
     Active Substance: UMECLIDINIUM BROMIDE
  194. UMECLIDINIUM BROMIDE [Suspect]
     Active Substance: UMECLIDINIUM BROMIDE
  195. UMECLIDINIUM BROMIDE [Suspect]
     Active Substance: UMECLIDINIUM BROMIDE
  196. UMECLIDINIUM BROMIDE [Suspect]
     Active Substance: UMECLIDINIUM BROMIDE
  197. UMECLIDINIUM BROMIDE [Suspect]
     Active Substance: UMECLIDINIUM BROMIDE
  198. UMECLIDINIUM BROMIDE [Suspect]
     Active Substance: UMECLIDINIUM BROMIDE
  199. UMECLIDINIUM BROMIDE [Suspect]
     Active Substance: UMECLIDINIUM BROMIDE
  200. UMECLIDINIUM BROMIDE [Suspect]
     Active Substance: UMECLIDINIUM BROMIDE
  201. ZENHALE [Suspect]
     Active Substance: FORMOTEROL FUMARATE\MOMETASONE FUROATE
     Indication: Product used for unknown indication
  202. ZENHALE [Suspect]
     Active Substance: FORMOTEROL FUMARATE\MOMETASONE FUROATE
  203. ZENHALE [Suspect]
     Active Substance: FORMOTEROL FUMARATE\MOMETASONE FUROATE
  204. ZENHALE [Suspect]
     Active Substance: FORMOTEROL FUMARATE\MOMETASONE FUROATE
  205. ZENHALE [Suspect]
     Active Substance: FORMOTEROL FUMARATE\MOMETASONE FUROATE
  206. ZENHALE [Suspect]
     Active Substance: FORMOTEROL FUMARATE\MOMETASONE FUROATE
  207. ZENHALE [Suspect]
     Active Substance: FORMOTEROL FUMARATE\MOMETASONE FUROATE
  208. ZENHALE [Suspect]
     Active Substance: FORMOTEROL FUMARATE\MOMETASONE FUROATE
  209. ZENHALE [Suspect]
     Active Substance: FORMOTEROL FUMARATE\MOMETASONE FUROATE
  210. ZENHALE [Suspect]
     Active Substance: FORMOTEROL FUMARATE\MOMETASONE FUROATE
  211. ZENHALE [Suspect]
     Active Substance: FORMOTEROL FUMARATE\MOMETASONE FUROATE
  212. ZENHALE [Suspect]
     Active Substance: FORMOTEROL FUMARATE\MOMETASONE FUROATE
  213. ZENHALE [Suspect]
     Active Substance: FORMOTEROL FUMARATE\MOMETASONE FUROATE
  214. ZENHALE [Suspect]
     Active Substance: FORMOTEROL FUMARATE\MOMETASONE FUROATE
  215. ACETAMINOPHEN [Suspect]
     Active Substance: ACETAMINOPHEN
     Indication: Product used for unknown indication
  216. ACETAMINOPHEN [Suspect]
     Active Substance: ACETAMINOPHEN
     Indication: Colitis ulcerative
  217. ACETAMINOPHEN [Suspect]
     Active Substance: ACETAMINOPHEN
  218. ACETAMINOPHEN [Suspect]
     Active Substance: ACETAMINOPHEN
  219. ACETAMINOPHEN [Suspect]
     Active Substance: ACETAMINOPHEN
  220. ACETAMINOPHEN [Suspect]
     Active Substance: ACETAMINOPHEN
  221. ACETAMINOPHEN [Suspect]
     Active Substance: ACETAMINOPHEN
  222. ACETAMINOPHEN [Suspect]
     Active Substance: ACETAMINOPHEN
  223. ACETAMINOPHEN [Suspect]
     Active Substance: ACETAMINOPHEN
  224. VEDOLIZUMAB [Suspect]
     Active Substance: VEDOLIZUMAB
  225. VEDOLIZUMAB [Suspect]
     Active Substance: VEDOLIZUMAB
  226. VEDOLIZUMAB [Suspect]
     Active Substance: VEDOLIZUMAB
  227. VEDOLIZUMAB [Suspect]
     Active Substance: VEDOLIZUMAB
  228. VEDOLIZUMAB [Suspect]
     Active Substance: VEDOLIZUMAB
  229. VEDOLIZUMAB [Suspect]
     Active Substance: VEDOLIZUMAB
  230. VEDOLIZUMAB [Suspect]
     Active Substance: VEDOLIZUMAB
  231. NUCALA [Suspect]
     Active Substance: MEPOLIZUMAB
     Indication: Asthma
     Dosage: 100 MILLIGRAM, QMONTH
     Dates: start: 20191121
  232. NUCALA [Suspect]
     Active Substance: MEPOLIZUMAB
  233. NUCALA [Suspect]
     Active Substance: MEPOLIZUMAB
  234. NUCALA [Suspect]
     Active Substance: MEPOLIZUMAB
  235. NUCALA [Suspect]
     Active Substance: MEPOLIZUMAB
  236. NUCALA [Suspect]
     Active Substance: MEPOLIZUMAB
  237. NUCALA [Suspect]
     Active Substance: MEPOLIZUMAB
  238. FOLATE SODIUM [Concomitant]
     Active Substance: FOLATE SODIUM
     Indication: Product used for unknown indication
     Dosage: 5 MILLIGRAM, QD
  239. CALCIUM [Concomitant]
     Active Substance: CALCIUM
     Indication: Supplementation therapy
  240. CALCIUM [Concomitant]
     Active Substance: CALCIUM
     Route: 065
  241. VITAMIN B12 [Concomitant]
     Active Substance: CYANOCOBALAMIN
     Indication: Supplementation therapy
     Dosage: 1000 MICROGRAM, QD
  242. VITAMIN B12 [Concomitant]
     Active Substance: CYANOCOBALAMIN
     Dosage: 1000 MICROGRAM, QD
     Route: 065
  243. VITAMIN D NOS [Concomitant]
     Active Substance: CHOLECALCIFEROL\ERGOCALCIFEROL
     Indication: Supplementation therapy
  244. FERRIC POLYSACCHARIDE COMPLEX [Concomitant]
     Active Substance: FERRIC POLYSACCHARIDE COMPLEX
     Indication: Supplementation therapy
     Dosage: 150 MILLIGRAM, QD
  245. FERRIC POLYSACCHARIDE COMPLEX [Concomitant]
     Active Substance: FERRIC POLYSACCHARIDE COMPLEX
     Dosage: 300 MILLIGRAM, QD
  246. FERRIC POLYSACCHARIDE COMPLEX [Concomitant]
     Active Substance: FERRIC POLYSACCHARIDE COMPLEX
     Dosage: 150 MILLIGRAM, QD
  247. CYANOCOBALAMIN [Concomitant]
     Active Substance: CYANOCOBALAMIN
     Indication: Supplementation therapy
     Dosage: 1000 MILLIGRAM, QD
  248. CYANOCOBALAMIN [Concomitant]
     Active Substance: CYANOCOBALAMIN
     Dosage: 1000 MILLIGRAM, QD
  249. CYANOCOBALAMIN [Concomitant]
     Active Substance: CYANOCOBALAMIN
     Dosage: 1000 MILLIGRAM, QD
  250. CYANOCOBALAMIN [Concomitant]
     Active Substance: CYANOCOBALAMIN
     Dosage: 1000 MILLIGRAM, QD
  251. CYANOCOBALAMIN [Concomitant]
     Active Substance: CYANOCOBALAMIN
     Dosage: 1000 MILLIGRAM, QD
  252. ERGOCALCIFEROL [Concomitant]
     Active Substance: ERGOCALCIFEROL
     Indication: Supplementation therapy

REACTIONS (31)
  - Interstitial lung disease [Unknown]
  - Systolic dysfunction [Unknown]
  - Pericardial effusion [Unknown]
  - Rectal haemorrhage [Unknown]
  - Vasculitis [Unknown]
  - Abdominal pain [Unknown]
  - Anaemia [Unknown]
  - Asthma [Unknown]
  - Blood test abnormal [Unknown]
  - Chest discomfort [Unknown]
  - Condition aggravated [Unknown]
  - Decreased appetite [Unknown]
  - Dyspnoea [Unknown]
  - Dyspnoea exertional [Unknown]
  - Eosinophilia [Unknown]
  - Gastrointestinal disorder [Unknown]
  - Insomnia [Unknown]
  - Iron deficiency [Unknown]
  - Myalgia [Unknown]
  - Obstructive airways disorder [Unknown]
  - Photophobia [Unknown]
  - Pulmonary function test decreased [Unknown]
  - Wheezing [Unknown]
  - Sinusitis [Unknown]
  - Cough [Unknown]
  - Colitis [Unknown]
  - Headache [Unknown]
  - Treatment noncompliance [Unknown]
  - Blood pressure decreased [Unknown]
  - Hypotension [Unknown]
  - Therapeutic product effect incomplete [Unknown]
